FAERS Safety Report 17191436 (Version 2)
Quarter: 2020Q4

REPORT INFORMATION
  Report Type: Spontaneous
  Country: US (occurrence: US)
  Receive Date: 20191223
  Receipt Date: 20201125
  Transmission Date: 20210113
  Serious: No
  Sender: FDA-Public Use
  Company Number: US-PFIZER INC-2019548865

PATIENT
  Age: 85 Year
  Sex: Male

DRUGS (2)
  1. VYNDAQEL [Suspect]
     Active Substance: TAFAMIDIS MEGLUMINE
     Indication: AMYLOIDOSIS
  2. VYNDAQEL [Suspect]
     Active Substance: TAFAMIDIS MEGLUMINE
     Indication: CARDIAC AMYLOIDOSIS
     Dosage: 80 MG
     Dates: start: 20190726

REACTIONS (7)
  - Oedema peripheral [Unknown]
  - Sluggishness [Unknown]
  - Dyspnoea exertional [Unknown]
  - Dizziness postural [Unknown]
  - Dyspnoea [Unknown]
  - Weight fluctuation [Unknown]
  - Hypoacusis [Unknown]
